FAERS Safety Report 5727877-1 (Version None)
Quarter: 2008Q2

REPORT INFORMATION
  Report Type: 
  Country: None (occurrence: None)
  Receive Date: 20080430
  Receipt Date: 20080229
  Transmission Date: 20081010
  Serious: Yes (Other)
  Sender: FDA-Public Use
  Company Number: 2008SP004304

PATIENT
  Sex: Male

DRUGS (1)
  1. CELESTONE SOLUSPAN [Suspect]
     Indication: DRUG USE FOR UNKNOWN INDICATION
     Dosage: ONCE
     Dates: start: 20030101, end: 20030101

REACTIONS (1)
  - CATARACT SUBCAPSULAR [None]
